FAERS Safety Report 17253041 (Version 1)
Quarter: 2019Q4

REPORT INFORMATION
  Report Type: Spontaneous
  Country: US (occurrence: US)
  Receive Date: 20191216
  Receipt Date: 20191216
  Transmission Date: 20200122
  Serious: Yes (Hospitalization)
  Sender: FDA-Public Use
  Company Number: None

PATIENT
  Age: 59 Year
  Sex: Female

DRUGS (11)
  1. COSENTYX [Suspect]
     Active Substance: SECUKINUMAB
     Indication: PSORIASIS
     Dosage: ?          OTHER FREQUENCY:EVERY 4 WK;?
     Route: 058
     Dates: start: 20190315
  2. GABAPENTIN CAP [Concomitant]
  3. VITAMIN C TAB [Concomitant]
  4. ESTRADIOL TAB [Concomitant]
     Active Substance: ESTRADIOL
  5. MELOXICAM TAB [Concomitant]
  6. XANAX TAB [Concomitant]
  7. CEPHALEXIN CAP [Concomitant]
  8. CYCLOBENZAPR TAB [Concomitant]
  9. CALCIUM CARB TAB [Concomitant]
  10. HYDROXYCHLOR TAB [Concomitant]
  11. D3 CP [Concomitant]

REACTIONS (1)
  - Pneumonia [None]

NARRATIVE: CASE EVENT DATE: 20191202
